FAERS Safety Report 11603317 (Version 1)
Quarter: 2015Q4

REPORT INFORMATION
  Report Type: Spontaneous
  Country: US (occurrence: None)
  Receive Date: 20151005
  Receipt Date: 20151005
  Transmission Date: 20160304
  Serious: No
  Sender: FDA-Public Use
  Company Number: None

PATIENT
  Age: 56 Year
  Sex: Female
  Weight: 61.24 kg

DRUGS (11)
  1. FLUOXETINE [Suspect]
     Active Substance: FLUOXETINE HYDROCHLORIDE
     Indication: DEPRESSION
     Dosage: 2 PILLS
     Route: 048
     Dates: start: 20150304, end: 20150408
  2. CYCLOBENZAPRINE [Concomitant]
     Active Substance: CYCLOBENZAPRINE
  3. LORATADINE. [Concomitant]
     Active Substance: LORATADINE
  4. ASPIRIN. [Concomitant]
     Active Substance: ASPIRIN
  5. ESTRADIOL. [Concomitant]
     Active Substance: ESTRADIOL
  6. ACETAMINOPHEN. [Concomitant]
     Active Substance: ACETAMINOPHEN
  7. CVS DAILY WOMEN^S ACTIVE MULTIVITAMIN SUPPLEMENT [Concomitant]
  8. BIOTIN [Concomitant]
     Active Substance: BIOTIN
  9. PHENTERMINE. [Concomitant]
     Active Substance: PHENTERMINE
  10. BUPROPION HCL [Concomitant]
     Active Substance: BUPROPION HYDROCHLORIDE
  11. NAPROXEN. [Concomitant]
     Active Substance: NAPROXEN

REACTIONS (5)
  - Abnormal behaviour [None]
  - Product physical issue [None]
  - Anxiety [None]
  - Mood swings [None]
  - Aggression [None]

NARRATIVE: CASE EVENT DATE: 20150304
